FAERS Safety Report 8409671-6 (Version None)
Quarter: 2012Q2

REPORT INFORMATION
  Report Type: 
  Country: None (occurrence: None)
  Receive Date: 20120529
  Receipt Date: 20120514
  Transmission Date: 20120825
  Serious: Yes (Hospitalization)
  Sender: FDA-Public Use
  Company Number: US-1191940

PATIENT
  Age: 72 Year
  Sex: Female
  Weight: 76.2043 kg

DRUGS (4)
  1. NEVANAC [Suspect]
     Indication: CATARACT OPERATION
     Dosage: (TID FOR 3 WEEKS, THEN BID FOR 5 WEEKS OPHTHALMIC)
     Route: 047
     Dates: start: 20120412, end: 20120516
  2. METOPROLOL TARTRATE [Concomitant]
  3. SIMVASTATIN [Concomitant]
  4. ASPIRIN [Concomitant]

REACTIONS (4)
  - TRANSIENT ISCHAEMIC ATTACK [None]
  - DYSKINESIA [None]
  - MUSCULAR WEAKNESS [None]
  - FEELING ABNORMAL [None]
